FAERS Safety Report 7868216-X (Version None)
Quarter: 2011Q4

REPORT INFORMATION
  Report Type: 
  Country: None (occurrence: None)
  Receive Date: 20111028
  Receipt Date: 20111026
  Transmission Date: 20120403
  Serious: Yes (Other)
  Sender: FDA-Public Use
  Company Number: IE-MERCK-1110GBR00100

PATIENT
  Age: 62 Year
  Sex: Male

DRUGS (6)
  1. BISOPROLOL FUMARATE [Concomitant]
     Route: 065
     Dates: start: 20110808
  2. ESOMEPRAZOLE [Suspect]
     Indication: GASTROOESOPHAGEAL REFLUX DISEASE
     Route: 048
  3. JANUMET [Suspect]
     Indication: TYPE 2 DIABETES MELLITUS
     Route: 048
     Dates: start: 20110808, end: 20111011
  4. WARFARIN [Concomitant]
     Route: 065
     Dates: start: 20110808
  5. PERINDOPRIL [Concomitant]
     Indication: HYPERTENSION
     Route: 065
  6. AMIODARONE HYDROCHLORIDE [Concomitant]
     Indication: ATRIAL FIBRILLATION
     Route: 065
     Dates: start: 20110808, end: 20111004

REACTIONS (3)
  - URTICARIA [None]
  - RASH MACULO-PAPULAR [None]
  - FEELING HOT [None]
